FAERS Safety Report 7222998-9 (Version None)
Quarter: 2011Q1

REPORT INFORMATION
  Report Type: 
  Country: None (occurrence: None)
  Receive Date: 20110112
  Receipt Date: 20101228
  Transmission Date: 20110831
  Serious: No
  Sender: FDA-Public Use
  Company Number: US-B.I. PHARMACEUTICALS,INC./RIDGEFIELD-2011-BP-00322BP

PATIENT
  Sex: Male

DRUGS (12)
  1. LOVAZA [Concomitant]
     Indication: BLOOD CHOLESTEROL INCREASED
  2. ASPIRIN [Concomitant]
     Indication: PROPHYLAXIS
  3. CHLORPHENIRAMINE MALEATE [Concomitant]
     Indication: SINUS DISORDER
  4. LASIX [Concomitant]
     Indication: OEDEMA PERIPHERAL
  5. AMARYL [Concomitant]
     Indication: DIABETES MELLITUS
  6. LANTUS [Concomitant]
     Indication: DIABETES MELLITUS
  7. PLAVIX [Concomitant]
     Indication: CARDIAC DISORDER
  8. LIPITOR [Concomitant]
     Indication: BLOOD CHOLESTEROL INCREASED
  9. AVODART [Concomitant]
     Indication: PROSTATOMEGALY
  10. GLUCOPHAGE [Concomitant]
     Indication: DIABETES MELLITUS
  11. PRADAXA [Suspect]
     Indication: ATRIAL FIBRILLATION
     Dosage: 300 MG
     Route: 048
     Dates: start: 20101215
  12. ACTOS [Concomitant]
     Indication: DIABETES MELLITUS

REACTIONS (1)
  - SOMNOLENCE [None]
